FAERS Safety Report 10073738 (Version 3)
Quarter: 2014Q3

REPORT INFORMATION
  Report Type: Spontaneous
  Country: US (occurrence: US)
  Receive Date: 20140411
  Receipt Date: 20140911
  Transmission Date: 20150326
  Serious: Yes (Hospitalization, Other)
  Sender: FDA-Public Use
  Company Number: US-009507513-1404USA004045

PATIENT
  Sex: Male

DRUGS (2)
  1. PERCOCET [Concomitant]
     Active Substance: ACETAMINOPHEN\OXYCODONE HYDROCHLORIDE
     Indication: BACK INJURY
     Dosage: UNK
     Dates: start: 1999
  2. PROPECIA [Suspect]
     Active Substance: FINASTERIDE
     Indication: ALOPECIA
     Dosage: 1 MG, QD
     Route: 048
     Dates: start: 20041118, end: 20060112

REACTIONS (11)
  - Anorgasmia [Unknown]
  - Erectile dysfunction [Not Recovered/Not Resolved]
  - Multiple fractures [Unknown]
  - Depression [Not Recovered/Not Resolved]
  - Cognitive disorder [Not Recovered/Not Resolved]
  - Anxiety [Not Recovered/Not Resolved]
  - Nerve graft [Unknown]
  - Hernia repair [Unknown]
  - Sexual dysfunction [Not Recovered/Not Resolved]
  - Post-traumatic stress disorder [Unknown]
  - Ejaculation delayed [Unknown]

NARRATIVE: CASE EVENT DATE: 2004
